FAERS Safety Report 9836235 (Version 3)
Quarter: 2014Q1

REPORT INFORMATION
  Report Type: Spontaneous
  Country: US (occurrence: US)
  Receive Date: 20140123
  Receipt Date: 20140213
  Transmission Date: 20141002
  Serious: Yes (Other)
  Sender: FDA-Public Use
  Company Number: US-AMGEN-USASP2014000942

PATIENT
  Age: 87 Year
  Sex: Male
  Weight: 62.13 kg

DRUGS (2)
  1. XGEVA [Suspect]
     Indication: PROSTATE CANCER METASTATIC
     Dosage: 120 MG, QMO
     Route: 058
     Dates: start: 20130612
  2. FIRMAGON /01764801/ [Suspect]
     Indication: PROSTATE CANCER
     Dosage: 80 MG, QMO
     Route: 058
     Dates: start: 20130612, end: 20131220

REACTIONS (2)
  - Drug hypersensitivity [Unknown]
  - Fatigue [Unknown]
